FAERS Safety Report 24728316 (Version 1)
Quarter: 2024Q4

REPORT INFORMATION
  Report Type: Spontaneous
  Country: FR (occurrence: FR)
  Receive Date: 20241212
  Receipt Date: 20241212
  Transmission Date: 20250115
  Serious: Yes (Death)
  Sender: JOHNSON AND JOHNSON
  Company Number: None

PATIENT
  Age: 50 Year
  Sex: Female
  Weight: 47 kg

DRUGS (8)
  1. AMIVANTAMAB [Suspect]
     Active Substance: AMIVANTAMAB
     Indication: Lung adenocarcinoma
     Route: 042
     Dates: start: 20241021, end: 20241021
  2. AMIVANTAMAB [Suspect]
     Active Substance: AMIVANTAMAB
     Route: 042
     Dates: start: 20241022, end: 20241022
  3. CARBOPLATIN [Suspect]
     Active Substance: CARBOPLATIN
     Indication: Lung adenocarcinoma
     Route: 042
     Dates: start: 20241021, end: 20241021
  4. PEMETREXED DISODIUM [Suspect]
     Active Substance: PEMETREXED DISODIUM
     Indication: Lung adenocarcinoma
     Route: 042
     Dates: start: 20241021, end: 20241021
  5. TAGRISSO [Concomitant]
     Active Substance: OSIMERTINIB
     Indication: Lung adenocarcinoma
     Route: 048
     Dates: start: 20220718, end: 202304
  6. TAGRISSO [Concomitant]
     Active Substance: OSIMERTINIB
     Route: 048
     Dates: start: 202304, end: 202308
  7. TAGRISSO [Concomitant]
     Active Substance: OSIMERTINIB
     Route: 048
     Dates: start: 202308, end: 202407
  8. TAGRISSO [Concomitant]
     Active Substance: OSIMERTINIB
     Route: 048
     Dates: start: 202407, end: 202410

REACTIONS (2)
  - Colitis [Fatal]
  - Pancytopenia [Fatal]

NARRATIVE: CASE EVENT DATE: 20241027
